FAERS Safety Report 14146282 (Version 1)
Quarter: 2017Q4

REPORT INFORMATION
  Report Type: Spontaneous
  Country: US (occurrence: None)
  Receive Date: 20171031
  Receipt Date: 20171031
  Transmission Date: 20180321
  Serious: Yes (Disabling)
  Sender: FDA-Public Use
  Company Number: None

PATIENT
  Age: 82 Year
  Sex: Female
  Weight: 40.37 kg

DRUGS (4)
  1. SUPPLEMENTS [Concomitant]
     Active Substance: UNSPECIFIED INGREDIENT
  2. VITS [Concomitant]
  3. CLINDAMYCIN. [Suspect]
     Active Substance: CLINDAMYCIN
     Indication: TOOTH INFECTION
     Route: 048
     Dates: start: 20170422, end: 20170426
  4. MINERALS [Concomitant]
     Active Substance: MINERALS

REACTIONS (3)
  - Lip swelling [None]
  - Lip exfoliation [None]
  - Rash [None]

NARRATIVE: CASE EVENT DATE: 20170605
